FAERS Safety Report 10575915 (Version 1)
Quarter: 2014Q4

REPORT INFORMATION
  Report Type: Spontaneous
  Country: US (occurrence: None)
  Receive Date: 20141110
  Receipt Date: 20141110
  Transmission Date: 20150529
  Serious: Yes (Hospitalization)
  Sender: FDA-Public Use
  Company Number: None

PATIENT
  Age: 60 Year
  Sex: Female
  Weight: 123.8 kg

DRUGS (3)
  1. METHOTREXATE [Suspect]
     Active Substance: METHOTREXATE
  2. PROCARBAZINE [Suspect]
     Active Substance: PROCARBAZINE
  3. RITUXIMAB (MOAB C2B8 ANTI CD20, CHIMERIC) [Suspect]
     Active Substance: RITUXIMAB

REACTIONS (10)
  - Retroperitoneal haemorrhage [None]
  - Metabolic acidosis [None]
  - Sepsis [None]
  - Mental status changes [None]
  - Blood lactic acid increased [None]
  - No therapeutic response [None]
  - Shock haemorrhagic [None]
  - Deep vein thrombosis [None]
  - Dyspnoea [None]
  - Multi-organ failure [None]

NARRATIVE: CASE EVENT DATE: 20140203
